FAERS Safety Report 5033444-8 (Version None)
Quarter: 2006Q2

REPORT INFORMATION
  Report Type: 
  Country: None (occurrence: None)
  Receive Date: 20060621
  Receipt Date: 20060612
  Transmission Date: 20061013
  Serious: Yes (Death)
  Sender: FDA-Public Use
  Company Number: T200600652

PATIENT
  Age: 35 Year
  Sex: Male

DRUGS (4)
  1. PAMELOR [Suspect]
     Indication: DEPRESSION
  2. REMERON [Suspect]
     Indication: DEPRESSION
     Dosage: ORAL
     Route: 048
     Dates: start: 20020717, end: 20020717
  3. BUSPAR [Suspect]
     Dosage: ORAL
     Route: 048
     Dates: start: 20020701
  4. CELEXA [Suspect]
     Indication: DEPRESSION

REACTIONS (3)
  - COMPLETED SUICIDE [None]
  - GUN SHOT WOUND [None]
  - URINARY RETENTION [None]
